FAERS Safety Report 15885069 (Version 6)
Quarter: 2020Q1

REPORT INFORMATION
  Report Type: Spontaneous
  Country: US (occurrence: US)
  Receive Date: 20190129
  Receipt Date: 20200313
  Transmission Date: 20200409
  Serious: Yes (Hospitalization)
  Sender: FDA-Public Use
  Company Number: US-PFIZER INC-2019035721

PATIENT
  Age: 78 Year
  Sex: Female
  Weight: 91 kg

DRUGS (2)
  1. TOVIAZ [Suspect]
     Active Substance: FESOTERODINE FUMARATE
     Indication: PAIN
  2. TOVIAZ [Suspect]
     Active Substance: FESOTERODINE FUMARATE
     Indication: URINARY INCONTINENCE
     Dosage: 8 MG, 1X/DAY
     Route: 048

REACTIONS (9)
  - Genital infection fungal [Recovering/Resolving]
  - Rash [Unknown]
  - Pain [Not Recovered/Not Resolved]
  - Urinary tract infection [Recovered/Resolved with Sequelae]
  - Therapeutic product effect incomplete [Not Recovered/Not Resolved]
  - Genital rash [Recovering/Resolving]
  - Skin haemorrhage [Unknown]
  - Loss of personal independence in daily activities [Unknown]
  - Pain of skin [Unknown]

NARRATIVE: CASE EVENT DATE: 2018
